FAERS Safety Report 10083494 (Version 2)
Quarter: 2014Q2

REPORT INFORMATION
  Report Type: Spontaneous
  Country: NL (occurrence: None)
  Receive Date: 20140415
  Receipt Date: 20140422
  Transmission Date: 20141212
  Serious: Yes (Other)
  Sender: FDA-Public Use
  Company Number: 2014P1003237

PATIENT
  Age: 60 Year
  Sex: Male

DRUGS (2)
  1. TRANYLCYPROMINE [Suspect]
     Indication: DEPRESSION
  2. TRAZODONE [Suspect]

REACTIONS (1)
  - Serotonin syndrome [None]
